FAERS Safety Report 24057968 (Version 2)
Quarter: 2024Q3

REPORT INFORMATION
  Report Type: Spontaneous
  Country: ES (occurrence: ES)
  Receive Date: 20240707
  Receipt Date: 20240708
  Transmission Date: 20241016
  Serious: Yes (Hospitalization, Other)
  Sender: ROCHE
  Company Number: ES-ROCHE-10000010477

PATIENT
  Age: 65 Year
  Sex: Male

DRUGS (11)
  1. ATEZOLIZUMAB [Suspect]
     Active Substance: ATEZOLIZUMAB
     Indication: Liver disorder
     Route: 065
     Dates: start: 20220810
  2. BEVACIZUMAB [Suspect]
     Active Substance: BEVACIZUMAB
     Indication: Liver disorder
     Route: 065
     Dates: start: 20220810
  3. CALCIFEDIOL [Concomitant]
     Active Substance: CALCIFEDIOL
  4. LACTULOSE [Concomitant]
     Active Substance: LACTULOSE
  5. RIFAXIMIN [Concomitant]
     Active Substance: RIFAXIMIN
  6. SPIRONOLACTONE [Concomitant]
     Active Substance: SPIRONOLACTONE
  7. FUROSEMIDE [Concomitant]
     Active Substance: FUROSEMIDE
  8. FUROSEMIDE [Concomitant]
     Active Substance: FUROSEMIDE
  9. ATORVASTATIN [Concomitant]
     Active Substance: ATORVASTATIN
  10. FERROUS SULFATE [Concomitant]
     Active Substance: FERROUS SULFATE
  11. DULOXETINE [Concomitant]
     Active Substance: DULOXETINE

REACTIONS (8)
  - Rhabdomyolysis [Unknown]
  - Renal impairment [Unknown]
  - Encephalopathy [Unknown]
  - Deep vein thrombosis [Unknown]
  - Transient ischaemic attack [Unknown]
  - Herpes zoster [Unknown]
  - Poor venous access [Unknown]
  - Portal hypertensive gastropathy [Unknown]

NARRATIVE: CASE EVENT DATE: 20221101
